FAERS Safety Report 23715260 (Version 1)
Quarter: 2024Q2

REPORT INFORMATION
  Report Type: Other
  Country: GB (occurrence: GB)
  Receive Date: 20240407
  Receipt Date: 20240407
  Transmission Date: 20240715
  Serious: Yes (Other)
  Sender: FDA-Public Use
  Company Number: GB-Aprecia Pharmaceuticals-APRE20240822

PATIENT
  Sex: Male

DRUGS (2)
  1. LEVETIRACETAM [Suspect]
     Active Substance: LEVETIRACETAM
     Indication: Epilepsy
     Dosage: 1000 MG
     Route: 065
  2. LAMOTRIGINE [Suspect]
     Active Substance: LAMOTRIGINE
     Indication: Epilepsy
     Dosage: UP TO 400 MG
     Route: 065

REACTIONS (3)
  - Toxic optic neuropathy [Recovered/Resolved with Sequelae]
  - Visual impairment [Recovered/Resolved]
  - Nystagmus [Recovered/Resolved]
